FAERS Safety Report 4336144-2 (Version None)
Quarter: 2004Q1

REPORT INFORMATION
  Report Type: 
  Country: None (occurrence: None)
  Receive Date: 20040329
  Receipt Date: 20040106
  Transmission Date: 20041129
  Serious: No
  Sender: FDA-Public Use
  Company Number: USA040155923

PATIENT
  Sex: Female

DRUGS (6)
  1. STRATTERA [Suspect]
     Indication: ATTENTION DEFICIT/HYPERACTIVITY DISORDER
     Dosage: 80 MG/DAY
     Dates: start: 20030801
  2. TRAZADONE (TRAZODONE) [Concomitant]
  3. MONOPRIL [Concomitant]
  4. CALCIUM [Concomitant]
  5. MULTIVITAMIN [Concomitant]
  6. METROLOTION (METRONIDAZOLE) [Concomitant]

REACTIONS (5)
  - DECREASED APPETITE [None]
  - DRY MOUTH [None]
  - PARAESTHESIA [None]
  - SEXUAL DYSFUNCTION [None]
  - WEIGHT DECREASED [None]
